FAERS Safety Report 5054564-8 (Version None)
Quarter: 2006Q3

REPORT INFORMATION
  Report Type: 
  Country: None (occurrence: None)
  Receive Date: 20060714
  Receipt Date: 20060707
  Transmission Date: 20061208
  Serious: Yes (Other)
  Sender: FDA-Public Use
  Company Number: CHNY2006AU01939

PATIENT
  Age: 64 Year
  Sex: Female

DRUGS (3)
  1. NICOTINE [Suspect]
     Dosage: SEE IMAGE
     Route: 062
     Dates: start: 20060401, end: 20060618
  2. NICOTINE [Suspect]
     Dosage: SEE IMAGE
     Route: 062
     Dates: start: 20060618
  3. AVAPRO [Concomitant]

REACTIONS (6)
  - BLOOD PRESSURE FLUCTUATION [None]
  - DIZZINESS [None]
  - EPISTAXIS [None]
  - HYPERTENSION [None]
  - MUSCLE TIGHTNESS [None]
  - NICOTINE DEPENDENCE [None]
